FAERS Safety Report 7427806-9 (Version None)
Quarter: 2011Q2

REPORT INFORMATION
  Report Type: 
  Country: None (occurrence: None)
  Receive Date: 20110421
  Receipt Date: 20100208
  Transmission Date: 20111010
  Serious: No
  Sender: FDA-Public Use
  Company Number: US-BAYER-201014126NA

PATIENT
  Age: 24 Year
  Sex: Female

DRUGS (2)
  1. YAZ [Suspect]
     Indication: MENORRHAGIA
     Dosage: UNK
     Dates: start: 20090101, end: 20100207
  2. YAZ [Suspect]
     Indication: DYSMENORRHOEA

REACTIONS (4)
  - VISION BLURRED [None]
  - FATIGUE [None]
  - HEADACHE [None]
  - DIZZINESS [None]
